FAERS Safety Report 16909027 (Version 1)
Quarter: 2019Q4

REPORT INFORMATION
  Report Type: Spontaneous
  Country: US (occurrence: US)
  Receive Date: 20191011
  Receipt Date: 20191011
  Transmission Date: 20200122
  Serious: No
  Sender: FDA-Public Use
  Company Number: US-PFIZER INC-2019340616

PATIENT
  Age: 63 Year
  Sex: Male
  Weight: 95.25 kg

DRUGS (1)
  1. SUTENT [Suspect]
     Active Substance: SUNITINIB MALATE
     Indication: GASTROINTESTINAL STROMAL TUMOUR
     Dosage: 50 MG, CYCLIC (TAKEN DAILY FOR 14 DAYS, WITH A 7 DAY REST PERIOD)
     Route: 048
     Dates: start: 20190801

REACTIONS (3)
  - Malaise [Unknown]
  - Feeling abnormal [Unknown]
  - Blood count abnormal [Unknown]
